FAERS Safety Report 19574882 (Version 1)
Quarter: 2021Q3

REPORT INFORMATION
  Report Type: Spontaneous
  Country: GB (occurrence: GB)
  Receive Date: 20210719
  Receipt Date: 20210719
  Transmission Date: 20211014
  Serious: Yes (Other)
  Sender: FDA-Public Use
  Company Number: GB-HIKMA PHARMACEUTICALS USA INC.-GB-H14001-21-54943

PATIENT
  Age: 49 Year
  Sex: Female

DRUGS (5)
  1. SODIUM CHLORIDE. [Suspect]
     Active Substance: SODIUM CHLORIDE
     Indication: CORONAVIRUS INFECTION
     Dosage: UNKNOWN
     Route: 065
  2. FLUMAZENIL. [Suspect]
     Active Substance: FLUMAZENIL
     Indication: CORONAVIRUS INFECTION
     Dosage: UNKNOWN
     Route: 065
     Dates: start: 20210603
  3. NITROUS OXIDE. [Suspect]
     Active Substance: NITROUS OXIDE
     Indication: SEDATIVE THERAPY
     Route: 065
     Dates: start: 20210603, end: 20210603
  4. MIDAZOLAM. [Suspect]
     Active Substance: MIDAZOLAM
     Indication: SEDATIVE THERAPY
     Route: 065
     Dates: start: 20210603, end: 20210603
  5. HEPARINISED SALINE [Suspect]
     Active Substance: HEPARIN SODIUM
     Indication: PRODUCT USED FOR UNKNOWN INDICATION
     Dosage: UNKNOWN
     Route: 065

REACTIONS (5)
  - Peripheral swelling [Unknown]
  - Swelling [Recovering/Resolving]
  - Anaphylactic reaction [Unknown]
  - Pain in extremity [Unknown]
  - Injury [Unknown]

NARRATIVE: CASE EVENT DATE: 20210603
